FAERS Safety Report 8045519-X (Version None)
Quarter: 2012Q1

REPORT INFORMATION
  Report Type: 
  Country: None (occurrence: None)
  Receive Date: 20120113
  Receipt Date: 20111118
  Transmission Date: 20120608
  Serious: Yes (Hospitalization)
  Sender: FDA-Public Use
  Company Number: PHHY2011JP49594

PATIENT
  Age: 64 Year
  Sex: Male
  Weight: 49 kg

DRUGS (18)
  1. OXYCODONE HYDROCHLORIDE [Concomitant]
     Dosage: UNK UKN, UNK
     Route: 065
  2. SODIUM BICARBONATE [Concomitant]
     Dosage: UNK UKN, UNK
  3. FLURBIPROFEN [Concomitant]
     Dosage: UNK UKN, UNK
     Route: 065
  4. BETAMETHASONE [Concomitant]
     Dosage: UNK UKN, UNK
  5. LOXONIN [Concomitant]
     Dosage: UNK UKN, UNK
  6. ACETAMINOPHEN [Concomitant]
     Dosage: UNK UKN, UNK
  7. ISODINE [Concomitant]
     Dosage: UNK UKN, UNK
  8. ZOMETA [Suspect]
     Indication: METASTASES TO BONE
     Dosage: 4 MG, UNK
     Route: 041
     Dates: start: 20110519, end: 20110519
  9. LYRICA [Suspect]
     Indication: PAIN
     Dosage: 150 MG, DAILY
     Route: 048
     Dates: start: 20110517, end: 20110527
  10. GOSHAJINKIGAN [Concomitant]
     Dosage: UNK UKN, UNK
     Route: 065
  11. ALOSENN [Concomitant]
     Dosage: UNK UKN, UNK
  12. PURSENNID [Concomitant]
     Dosage: UNK UKN, UNK
  13. LANSOPRAZOLE [Concomitant]
     Dosage: UNK UKN, UNK
  14. PROMACTA [Concomitant]
     Dosage: UNK UKN, UNK
  15. LENDORMIN [Concomitant]
     Dosage: UNK UKN, UNK
  16. ALLOPURINOL [Concomitant]
     Dosage: UNK UKN, UNK
  17. ERBITUX [Concomitant]
     Dosage: UNK UKN, UNK
  18. TOPOTECAN [Concomitant]
     Dosage: UNK UKN, UNK

REACTIONS (5)
  - ALANINE AMINOTRANSFERASE INCREASED [None]
  - HYPERKALAEMIA [None]
  - BONE PAIN [None]
  - HEPATIC FUNCTION ABNORMAL [None]
  - ASPARTATE AMINOTRANSFERASE INCREASED [None]
